FAERS Safety Report 19469435 (Version 1)
Quarter: 2021Q2

REPORT INFORMATION
  Report Type: Spontaneous
  Country: GB (occurrence: GB)
  Receive Date: 20210628
  Receipt Date: 20210628
  Transmission Date: 20210717
  Serious: Yes (Other)
  Sender: FDA-Public Use
  Company Number: GB-GLAXOSMITHKLINE-GB2021137716

PATIENT
  Age: 42 Year
  Sex: Female
  Weight: 59.41 kg

DRUGS (2)
  1. SERTRALINE [Concomitant]
     Active Substance: SERTRALINE HYDROCHLORIDE
     Indication: PRODUCT USED FOR UNKNOWN INDICATION
     Dosage: UNK
     Route: 065
  2. DUAC [Suspect]
     Active Substance: BENZOYL PEROXIDE\CLINDAMYCIN PHOSPHATE
     Indication: ACNE
     Dosage: 1 DF, QD, APPLY A THIN LAYER. 10MG/G +30MG/G.
     Route: 061
     Dates: start: 20210510, end: 20210511

REACTIONS (4)
  - Erythema [Recovering/Resolving]
  - Blister [Recovered/Resolved with Sequelae]
  - Pruritus [Recovering/Resolving]
  - Swelling face [Recovered/Resolved]

NARRATIVE: CASE EVENT DATE: 20210511
